FAERS Safety Report 7101153-7 (Version None)
Quarter: 2010Q4

REPORT INFORMATION
  Report Type: 
  Country: None (occurrence: None)
  Receive Date: 20101105
  Receipt Date: 20101103
  Transmission Date: 20110411
  Serious: Yes (Other)
  Sender: FDA-Public Use
  Company Number: 20109546

PATIENT
  Sex: Male

DRUGS (1)
  1. LIORESAL [Suspect]
     Indication: MUSCLE SPASTICITY
     Dosage: SEE B5 MCG, DAILY, INTRATHECAL
     Route: 037

REACTIONS (5)
  - DEVICE ALARM ISSUE [None]
  - DEVICE INEFFECTIVE [None]
  - HEARING IMPAIRED [None]
  - MUSCLE SPASMS [None]
  - PAIN [None]
